FAERS Safety Report 8130336-2 (Version None)
Quarter: 2012Q1

REPORT INFORMATION
  Report Type: 
  Country: None (occurrence: None)
  Receive Date: 20120210
  Receipt Date: 20120206
  Transmission Date: 20120608
  Serious: Yes (Other)
  Sender: FDA-Public Use
  Company Number: PHHY2009JP58982

PATIENT
  Age: 48 Year
  Sex: Female

DRUGS (5)
  1. ADRENOCORTICOTROPHIC HORMONE [Concomitant]
     Indication: RENAL TRANSPLANT
  2. SIMULECT [Suspect]
     Indication: RENAL TRANSPLANT
     Dosage: 20 MG
     Route: 042
  3. PREDNISOLONE [Suspect]
     Indication: RENAL TRANSPLANT
     Dosage: UNK UKN, UNK
     Route: 048
  4. MYCOPHENOLATE MOFETIL (CELLCEPT) [Suspect]
     Indication: RENAL TRANSPLANT
     Dosage: UNK UKN, UNK
     Route: 048
  5. PROGRAF [Suspect]
     Indication: RENAL TRANSPLANT
     Dosage: UNK UKN, UNK
     Route: 048

REACTIONS (5)
  - DUODENAL ULCER HAEMORRHAGE [None]
  - RENAL FAILURE ACUTE [None]
  - CYTOMEGALOVIRUS INFECTION [None]
  - ADULT T-CELL LYMPHOMA/LEUKAEMIA [None]
  - RENAL TUBULAR DISORDER [None]
